FAERS Safety Report 6582529-3 (Version None)
Quarter: 2010Q1

REPORT INFORMATION
  Report Type: 
  Country: None (occurrence: None)
  Receive Date: 20100212
  Receipt Date: 20100212
  Transmission Date: 20100710
  Serious: Yes (Life-Threatening, Hospitalization)
  Sender: FDA-Public Use
  Company Number: None

PATIENT
  Age: 72 Year
  Sex: Male
  Weight: 90.1 kg

DRUGS (4)
  1. LISINOPRIL [Suspect]
     Indication: HYPERTENSION
     Dosage: 20 MG EVERY DAY PO; PO
     Route: 048
     Dates: start: 20091009, end: 20091009
  2. LISINOPRIL [Suspect]
     Indication: UPPER RESPIRATORY TRACT INFECTION
     Dosage: 20 MG EVERY DAY PO; PO
     Route: 048
     Dates: start: 20091009, end: 20091009
  3. LISINOPRIL [Suspect]
     Indication: HYPERTENSION
     Dosage: 20 MG EVERY DAY PO; PO
     Route: 048
     Dates: start: 19980526, end: 20091010
  4. LISINOPRIL [Suspect]
     Indication: UPPER RESPIRATORY TRACT INFECTION
     Dosage: 20 MG EVERY DAY PO; PO
     Route: 048
     Dates: start: 19980526, end: 20091010

REACTIONS (1)
  - ANGIOEDEMA [None]
